FAERS Safety Report 16163119 (Version 1)
Quarter: 2019Q2

REPORT INFORMATION
  Report Type: Spontaneous
  Country: US (occurrence: US)
  Receive Date: 20190405
  Receipt Date: 20190405
  Transmission Date: 20190711
  Serious: Yes (Hospitalization)
  Sender: FDA-Public Use
  Company Number: US-ELI_LILLY_AND_COMPANY-US201903014484

PATIENT
  Sex: Male

DRUGS (7)
  1. LANTUS [Concomitant]
     Active Substance: INSULIN GLARGINE
     Dosage: 30 IU, EACH EVENING
  2. LANTUS [Concomitant]
     Active Substance: INSULIN GLARGINE
     Dosage: 10 IU, EACH MORNING
  3. ADMELOG [Suspect]
     Active Substance: INSULIN LISPRO
     Indication: TYPE 1 DIABETES MELLITUS
     Dosage: UNK UNK, UNKNOWN
     Route: 065
  4. LANTUS [Concomitant]
     Active Substance: INSULIN GLARGINE
     Dosage: 20 IU, DAILY
  5. BASAGLAR [Suspect]
     Active Substance: INSULIN GLARGINE
     Indication: TYPE 1 DIABETES MELLITUS
     Dosage: UNK UNK, UNKNOWN
     Route: 065
  6. LANTUS [Concomitant]
     Active Substance: INSULIN GLARGINE
     Indication: TYPE 1 DIABETES MELLITUS
     Dosage: 55 IU, DAILY
  7. HUMALOG [Suspect]
     Active Substance: INSULIN LISPRO
     Indication: TYPE 1 DIABETES MELLITUS
     Dosage: UNK UNK, UNKNOWN
     Route: 065
     Dates: start: 2002

REACTIONS (11)
  - Chest pain [Not Recovered/Not Resolved]
  - Impaired gastric emptying [Recovered/Resolved]
  - Drug ineffective [Unknown]
  - Sepsis [Recovering/Resolving]
  - Vomiting [Recovered/Resolved]
  - Fat tissue decreased [Recovering/Resolving]
  - Asthenia [Not Recovered/Not Resolved]
  - Ketoacidosis [Recovering/Resolving]
  - Weight decreased [Recovering/Resolving]
  - Blood glucose increased [Unknown]
  - Blood insulin abnormal [Unknown]

NARRATIVE: CASE EVENT DATE: 201902
